FAERS Safety Report 14956387 (Version 1)
Quarter: 2018Q2

REPORT INFORMATION
  Report Type: Spontaneous
  Country: US (occurrence: US)
  Receive Date: 20180531
  Receipt Date: 20180531
  Transmission Date: 20180711
  Serious: No
  Sender: FDA-Public Use
  Company Number: US-NOVEN PHARMACEUTICALS, INC.-US2017000846

PATIENT

DRUGS (3)
  1. DAYTRANA [Suspect]
     Active Substance: METHYLPHENIDATE
     Indication: ATTENTION DEFICIT/HYPERACTIVITY DISORDER
     Dosage: UNK UNK, UNKNOWN
     Route: 062
     Dates: start: 2014
  2. CELEXA [Concomitant]
     Active Substance: CITALOPRAM HYDROBROMIDE
     Indication: ANXIETY
  3. DAYTRANA [Suspect]
     Active Substance: METHYLPHENIDATE
     Dosage: 15 MG, UNKNOWN
     Route: 062
     Dates: start: 201703, end: 201706

REACTIONS (8)
  - Drug dose omission [Not Recovered/Not Resolved]
  - Drug ineffective [Unknown]
  - Product adhesion issue [Unknown]
  - Drug prescribing error [Unknown]
  - Application site pain [Unknown]
  - Product quality issue [Unknown]
  - Application site erythema [Unknown]
  - Application site pruritus [Unknown]

NARRATIVE: CASE EVENT DATE: 201706
